FAERS Safety Report 19041663 (Version 2)
Quarter: 2021Q2

REPORT INFORMATION
  Report Type: Spontaneous
  Country: DE (occurrence: DE)
  Receive Date: 20210323
  Receipt Date: 20210508
  Transmission Date: 20210717
  Serious: Yes (Other)
  Sender: FDA-Public Use
  Company Number: DE-ROCHE-2790646

PATIENT
  Sex: Female
  Weight: 90 kg

DRUGS (4)
  1. GAZYVARO [Suspect]
     Active Substance: OBINUTUZUMAB
     Indication: CHRONIC LYMPHOCYTIC LEUKAEMIA
     Route: 042
     Dates: start: 202008
  2. VENCLEXTA [Suspect]
     Active Substance: VENETOCLAX
     Indication: CHRONIC LYMPHOCYTIC LEUKAEMIA
     Dosage: IN COMBINATION WITH GAZYVARO
     Route: 048
     Dates: start: 20200811
  3. GAZYVARO [Suspect]
     Active Substance: OBINUTUZUMAB
     Dosage: IN COMBINATION WITH VENCLEXTA
     Route: 042
     Dates: start: 20200721, end: 20201209
  4. DEXAMETHASONE. [Concomitant]
     Active Substance: DEXAMETHASONE
     Route: 042
     Dates: start: 20200721, end: 20201209

REACTIONS (1)
  - Osteonecrosis of jaw [Unknown]
